FAERS Safety Report 8321748-2 (Version None)
Quarter: 2012Q2

REPORT INFORMATION
  Report Type: 
  Country: None (occurrence: None)
  Receive Date: 20120430
  Receipt Date: 20091112
  Transmission Date: 20120825
  Serious: No
  Sender: FDA-Public Use
  Company Number: US-TEVA-2009020786

PATIENT
  Sex: Female
  Weight: 83.99 kg

DRUGS (2)
  1. NUVIGIL [Suspect]
     Dosage: 250 MILLIGRAM;
     Dates: start: 20091111
  2. NUVIGIL [Suspect]
     Indication: SOMNOLENCE
     Dosage: 150 MILLIGRAM;
     Dates: start: 20091104, end: 20091110

REACTIONS (2)
  - DRUG INEFFECTIVE FOR UNAPPROVED INDICATION [None]
  - INSOMNIA [None]
